FAERS Safety Report 11789712 (Version 1)
Quarter: 2015Q4

REPORT INFORMATION
  Report Type: Report from Study
  Country: KR (occurrence: KR)
  Receive Date: 20151201
  Receipt Date: 20151201
  Transmission Date: 20160305
  Serious: Yes (Death)
  Sender: FDA-Public Use
  Company Number: KR-MYLANLABS-2015M1042505

PATIENT

DRUGS (2)
  1. CAPECITABINE. [Suspect]
     Active Substance: CAPECITABINE
     Indication: OESOPHAGEAL SQUAMOUS CELL CARCINOMA METASTATIC
     Dosage: 1000 MG/M2 TWICE A DAY ON DAYS 1-14
     Route: 048
  2. CISPLATIN. [Suspect]
     Active Substance: CISPLATIN
     Indication: OESOPHAGEAL SQUAMOUS CELL CARCINOMA METASTATIC
     Dosage: 75 MG/M2 ON DAY 1
     Route: 042

REACTIONS (1)
  - Tumour haemorrhage [Fatal]
